FAERS Safety Report 4733092-0 (Version None)
Quarter: 2005Q3

REPORT INFORMATION
  Report Type: 
  Country: None (occurrence: None)
  Receive Date: 20050801
  Receipt Date: 20050801
  Transmission Date: 20060218
  Serious: Yes (Hospitalization)
  Sender: FDA-Public Use
  Company Number: None

PATIENT
  Age: 49 Year
  Sex: Male

DRUGS (6)
  1. BACLOFEN [Suspect]
  2. BUSPIRONE [Suspect]
  3. MIRTAZAPINE [Suspect]
  4. QUETIAPINE FUMARATE [Suspect]
  5. SERTRALINE HCL [Suspect]
  6. TRAMADOL HCL [Suspect]

REACTIONS (10)
  - AGITATION [None]
  - HEADACHE [None]
  - HYPERHIDROSIS [None]
  - HYPOTENSION [None]
  - HYPOXIA [None]
  - INSOMNIA [None]
  - PYREXIA [None]
  - SEPSIS [None]
  - SEROTONIN SYNDROME [None]
  - TREMOR [None]
